FAERS Safety Report 17777459 (Version 4)
Quarter: 2022Q3

REPORT INFORMATION
  Report Type: Spontaneous
  Country: DE (occurrence: DE)
  Receive Date: 20200513
  Receipt Date: 20220826
  Transmission Date: 20221027
  Serious: Yes (Other)
  Sender: FDA-Public Use
  Company Number: DE-NOVARTISPH-NVSC2020DE128002

PATIENT
  Age: 54 Year
  Sex: Male
  Weight: 78 kg

DRUGS (33)
  1. VALSARTAN [Suspect]
     Active Substance: VALSARTAN
     Indication: Hypertension
     Dosage: 200 MG/ML
     Route: 065
  2. CANDESARTAN CILEXETIL [Suspect]
     Active Substance: CANDESARTAN CILEXETIL
     Indication: Product used for unknown indication
     Dosage: UNK
     Route: 065
  3. CANDESARTAN [Suspect]
     Active Substance: CANDESARTAN
     Indication: Product used for unknown indication
     Dosage: UNK
     Route: 065
  4. CANDESARTAN CILEXETIL [Suspect]
     Active Substance: CANDESARTAN CILEXETIL
     Indication: Product used for unknown indication
     Dosage: UNK
     Route: 065
  5. VALSARTAN [Suspect]
     Active Substance: VALSARTAN
     Indication: Product used for unknown indication
     Dosage: UNK
     Route: 065
  6. VALSARTAN [Suspect]
     Active Substance: VALSARTAN
     Indication: Hypertension
     Dosage: 160 MG, DAILY (ONCE IN THE MORNING)
     Route: 048
     Dates: start: 2015, end: 201807
  7. VALSARTAN [Suspect]
     Active Substance: VALSARTAN
     Indication: Hypertension
  8. CALCITRIOL [Concomitant]
     Active Substance: CALCITRIOL
     Indication: Product used for unknown indication
     Dosage: 2 DOSAGE FORM (AM (2 IN MORNING))
     Route: 065
  9. CALCITRIOL [Concomitant]
     Active Substance: CALCITRIOL
     Dosage: 0.25 UG,DAILY (2 IN MORNING)
  10. CHOLECALCIFEROL [Concomitant]
     Active Substance: CHOLECALCIFEROL
     Indication: Product used for unknown indication
     Dosage: UNK
     Route: 065
  11. CANDESARTAN CILEXETIL [Concomitant]
     Active Substance: CANDESARTAN CILEXETIL
     Indication: Product used for unknown indication
     Dosage: PM 1 EVENING
     Route: 065
  12. DREISAVIT N [Concomitant]
     Indication: Product used for unknown indication
     Dosage: PM 1 EVENING
     Route: 065
  13. DREISAVIT N [Concomitant]
     Dosage: UNK, DAILY (1 EVENING)
     Route: 065
  14. PRAVASTATIN 1A PHARMA GMBH [Concomitant]
     Indication: Product used for unknown indication
     Dosage: 1 DOSAGE FORM, QD (PM (1 EVENING))
     Route: 065
  15. CPS [Concomitant]
     Indication: Product used for unknown indication
     Dosage: UP TO 8 SACHETS PER DAY TO THE MEAL
     Route: 065
  16. PREDNISONE [Concomitant]
     Active Substance: PREDNISONE
     Indication: Product used for unknown indication
     Dosage: 5 MG, 1 AT MORNING
     Route: 065
  17. PREDNISONE [Concomitant]
     Active Substance: PREDNISONE
     Dosage: UNK, DAILY (1 AT MORNING)
     Route: 065
  18. RETACRIT [Concomitant]
     Active Substance: EPOETIN ALFA-EPBX
     Indication: Product used for unknown indication
     Dosage: UNK (MONDAY AND FRIDAY, INTRAVENOUS)
     Route: 042
  19. PANTOPRAZOL MICRO [Concomitant]
     Indication: Product used for unknown indication
     Dosage: UNK, BID (1 MORNING 1 EVENING)
     Route: 065
  20. METAMIZOLE SODIUM [Concomitant]
     Active Substance: METAMIZOLE SODIUM
     Indication: Product used for unknown indication
     Dosage: UNK, PRN
     Route: 065
  21. AMLODIPIN ABZ [Concomitant]
     Indication: Product used for unknown indication
     Dosage: HS 1 AT NOON
     Route: 065
  22. AMLODIPIN ABZ [Concomitant]
     Dosage: UNK , DAILY(1 AT NOON)
     Route: 065
  23. SODIUM BICARBONATE [Concomitant]
     Active Substance: SODIUM BICARBONATE
     Indication: Product used for unknown indication
     Dosage: 2-0-2 SATURDAY AND SUNDAY
     Route: 065
  24. SODIUM BICARBONATE [Concomitant]
     Active Substance: SODIUM BICARBONATE
     Dosage: UNK, BID(2-0-2 SATURDAY AND SUNDAY)
     Route: 065
  25. DOXAZOSIN [Concomitant]
     Active Substance: DOXAZOSIN MESYLATE
     Indication: Product used for unknown indication
     Dosage: 2 DOSAGE FORM, QD (PM (2 EVENING))
     Route: 065
  26. DOXAZOSIN [Concomitant]
     Active Substance: DOXAZOSIN MESYLATE
     Dosage: UNK, DAILY(2 EVENING)
     Route: 065
  27. ASPIRIN [Concomitant]
     Active Substance: ASPIRIN
     Indication: Product used for unknown indication
     Dosage: UNK, QD (1 AT MORNING)
     Route: 065
  28. METOPROLOL SUCCINATE [Concomitant]
     Active Substance: METOPROLOL SUCCINATE
     Indication: Product used for unknown indication
     Dosage: 1 EVENING
     Route: 065
  29. METOPROLOL SUCCINATE [Concomitant]
     Active Substance: METOPROLOL SUCCINATE
     Dosage: UNK, DAILY(1 EVENING)
     Route: 065
  30. NEPRESOL [Concomitant]
     Indication: Product used for unknown indication
     Dosage: 2 EVENING
     Route: 065
  31. RENVELA [Concomitant]
     Active Substance: SEVELAMER CARBONATE
     Indication: Product used for unknown indication
     Dosage: 2 IN MORNING
     Route: 065
  32. RENVELA [Concomitant]
     Active Substance: SEVELAMER CARBONATE
     Dosage: UNK, DAILY (2 IN MORNING)
     Route: 065
  33. MELPERONE [Concomitant]
     Active Substance: MELPERONE
     Indication: Product used for unknown indication
     Dosage: 1 NIGHT (FROM GP)
     Route: 065

REACTIONS (11)
  - Mental impairment [Not Recovered/Not Resolved]
  - Anhedonia [Unknown]
  - Decreased interest [Unknown]
  - Diabetes mellitus [Unknown]
  - Chronic kidney disease [Unknown]
  - Anxiety disorder [Unknown]
  - Depression [Unknown]
  - Job dissatisfaction [Unknown]
  - Product contamination [Unknown]
  - Fear of disease [Not Recovered/Not Resolved]
  - Quality of life decreased [Not Recovered/Not Resolved]

NARRATIVE: CASE EVENT DATE: 20180101
